FAERS Safety Report 25228823 (Version 1)
Quarter: 2025Q2

REPORT INFORMATION
  Report Type: Report from Study
  Country: ZA (occurrence: ZA)
  Receive Date: 20250423
  Receipt Date: 20250423
  Transmission Date: 20250716
  Serious: Yes (Hospitalization)
  Sender: ALEXION PHARMACEUTICALS
  Company Number: ZA-AstraZeneca-CH-00850587A

PATIENT
  Age: 65 Year

DRUGS (5)
  1. BUDESONIDE\FORMOTEROL [Suspect]
     Active Substance: BUDESONIDE\FORMOTEROL
     Indication: Asthma
  2. WARFARIN [Concomitant]
     Active Substance: WARFARIN
  3. SIMVASTATIN [Concomitant]
     Active Substance: SIMVASTATIN
     Indication: Blood cholesterol
  4. Amloc [Concomitant]
     Indication: Hypertension
  5. Spiractin [Concomitant]
     Indication: Hypertension

REACTIONS (1)
  - Epistaxis [Unknown]
